FAERS Safety Report 19907375 (Version 2)
Quarter: 2022Q1

REPORT INFORMATION
  Report Type: Spontaneous
  Country: CN (occurrence: CN)
  Receive Date: 20211001
  Receipt Date: 20220331
  Transmission Date: 20220423
  Serious: Yes (Other)
  Sender: FDA-Public Use
  Company Number: CN-PFIZER INC-202101227619

PATIENT
  Age: 79 Year
  Sex: Male
  Weight: 43.3 kg

DRUGS (2)
  1. VFEND [Suspect]
     Active Substance: VORICONAZOLE
     Indication: Symptomatic treatment
     Dosage: 0.4 G, 1X/DAY
     Route: 041
     Dates: start: 20210812, end: 20210812
  2. VFEND [Suspect]
     Active Substance: VORICONAZOLE
     Dosage: 0.2 G, 2X/DAY
     Route: 041
     Dates: start: 20210813, end: 20210815

REACTIONS (1)
  - Delirium [Recovered/Resolved]

NARRATIVE: CASE EVENT DATE: 20210814
